FAERS Safety Report 5251001-5 (Version None)
Quarter: 2007Q1

REPORT INFORMATION
  Report Type: 
  Country: None (occurrence: None)
  Receive Date: 20070228
  Receipt Date: 20060808
  Transmission Date: 20070707
  Serious: No
  Sender: FDA-Public Use
  Company Number: US-GLAXOSMITHKLINE-A0615780A

PATIENT
  Sex: Male

DRUGS (5)
  1. LAMICTAL [Suspect]
     Dosage: 100MG PER DAY
     Route: 048
     Dates: start: 20060401, end: 20060701
  2. WELLBUTRIN [Concomitant]
  3. XANAX [Concomitant]
  4. KLONOPIN [Concomitant]
  5. NEXIUM [Concomitant]

REACTIONS (2)
  - PHARYNGOLARYNGEAL PAIN [None]
  - TONGUE DISORDER [None]
